FAERS Safety Report 6218118-X (Version None)
Quarter: 2009Q2

REPORT INFORMATION
  Report Type: 
  Country: None (occurrence: None)
  Receive Date: 20090608
  Receipt Date: 20090602
  Transmission Date: 20091009
  Serious: Yes (Death, Other)
  Sender: FDA-Public Use
  Company Number: PHHY2009MX20725

PATIENT

DRUGS (1)
  1. FEMARA [Suspect]
     Indication: BREAST CANCER
     Dosage: UNK
     Route: 048
     Dates: start: 20081201, end: 20090320

REACTIONS (4)
  - DEATH [None]
  - METASTASES TO BONE [None]
  - METASTASES TO LUNG [None]
  - METASTASES TO PANCREAS [None]
